FAERS Safety Report 20331881 (Version 1)
Quarter: 2022Q1

REPORT INFORMATION
  Report Type: Spontaneous
  Country: CA (occurrence: CA)
  Receive Date: 20220113
  Receipt Date: 20220113
  Transmission Date: 20220423
  Serious: Yes (Other)
  Sender: FDA-Public Use
  Company Number: CA-PFIZER INC-202101661122

PATIENT
  Age: 26 Year
  Sex: Female
  Weight: 59 kg

DRUGS (2)
  1. SULFASALAZINE [Suspect]
     Active Substance: SULFASALAZINE
     Indication: Psoriatic arthropathy
     Dosage: 1000MG
     Route: 048
     Dates: start: 202109
  2. CORTISONE [Concomitant]
     Active Substance: CORTISONE
     Dosage: 20 MG, 1X/DAY
     Route: 065
     Dates: start: 20211015

REACTIONS (4)
  - Bacterial infection [Not Recovered/Not Resolved]
  - Escherichia infection [Not Recovered/Not Resolved]
  - Urinary tract infection [Unknown]
  - Milk allergy [Unknown]
